FAERS Safety Report 4296477-5 (Version None)
Quarter: 2004Q1

REPORT INFORMATION
  Report Type: 
  Country: None (occurrence: None)
  Receive Date: 20040217
  Receipt Date: 20040204
  Transmission Date: 20041129
  Serious: Yes (Disabling)
  Sender: FDA-Public Use
  Company Number: PHRM2004FR00764

PATIENT
  Age: 43 Year
  Sex: Male

DRUGS (1)
  1. ESIDRIX [Suspect]
     Route: 048

REACTIONS (1)
  - THROMBOSIS [None]
